FAERS Safety Report 7888802-0 (Version None)
Quarter: 2011Q4

REPORT INFORMATION
  Report Type: 
  Country: None (occurrence: None)
  Receive Date: 20111103
  Receipt Date: 20111031
  Transmission Date: 20120403
  Serious: Yes (Other)
  Sender: FDA-Public Use
  Company Number: GB-PFIZER INC-2011097467

PATIENT
  Age: 74 Year
  Sex: Female
  Weight: 60 kg

DRUGS (7)
  1. LANSOPRAZOLE [Concomitant]
     Dosage: 30 MG, 2X/DAY
  2. DIHYDROCODEINE [Concomitant]
     Dosage: 60 MG, 4X/DAY
  3. PARACETAMOL [Concomitant]
     Dosage: 1 G, 4X/DAY
  4. RISEDRONATE SODIUM [Concomitant]
  5. FLUOXETINE [Concomitant]
     Dosage: 20 MG, 1X/DAY
  6. GABAPENTIN [Suspect]
     Indication: RESTLESS LEGS SYNDROME
     Dosage: 100 MG, 1X/DAY AT NIGHT
     Route: 048
     Dates: start: 20110404, end: 20110409
  7. D-PENICILLAMINE [Concomitant]
     Dosage: 750 MG, 1X/DAY

REACTIONS (6)
  - DYSPNOEA [None]
  - ATRIAL FIBRILLATION [None]
  - FATIGUE [None]
  - CARDIAC FAILURE CONGESTIVE [None]
  - HEART RATE IRREGULAR [None]
  - JOINT SWELLING [None]
